FAERS Safety Report 20326760 (Version 3)
Quarter: 2022Q1

REPORT INFORMATION
  Report Type: Report from Study
  Country: JP (occurrence: JP)
  Receive Date: 20220112
  Receipt Date: 20220330
  Transmission Date: 20220423
  Serious: Yes (Death, Hospitalization)
  Sender: FDA-Public Use
  Company Number: JP-BAYER-2021A259719

PATIENT
  Age: 79 Year
  Sex: Male
  Weight: 73.9 kg

DRUGS (19)
  1. RADIUM RA-223 DICHLORIDE [Suspect]
     Active Substance: RADIUM RA-223 DICHLORIDE
     Indication: Hormone-refractory prostate cancer
     Dosage: 50KBQ, EVERY 4 WEEKS
     Route: 042
     Dates: start: 20160728, end: 20161222
  2. RADIUM RA-223 DICHLORIDE [Suspect]
     Active Substance: RADIUM RA-223 DICHLORIDE
     Indication: Metastases to bone
     Route: 042
  3. PREDNISOLONE [Suspect]
     Active Substance: PREDNISOLONE
     Indication: Hormone-refractory prostate cancer
     Dosage: 5 MG, BID
     Route: 048
     Dates: start: 20160728, end: 20211118
  4. PREDNISOLONE [Suspect]
     Active Substance: PREDNISOLONE
     Indication: Metastases to bone
  5. ABIRATERONE ACETATE [Suspect]
     Active Substance: ABIRATERONE ACETATE
     Indication: Hormone-refractory prostate cancer
     Dosage: 1000 MG, QD
     Route: 048
     Dates: start: 20160728, end: 20211118
  6. ABIRATERONE ACETATE [Suspect]
     Active Substance: ABIRATERONE ACETATE
     Indication: Metastases to bone
  7. DEGARELIX ACETATE [Concomitant]
     Active Substance: DEGARELIX ACETATE
     Dosage: 80MG/4WEEKS
     Route: 058
     Dates: start: 20150918, end: 20211108
  8. FUROSEMIDE [Concomitant]
     Active Substance: FUROSEMIDE
     Indication: Oedema peripheral
     Dosage: 10-20MG DAILY
     Route: 048
     Dates: start: 20200622, end: 20211116
  9. LANSOPRAZOLE [Concomitant]
     Active Substance: LANSOPRAZOLE
     Indication: Gastritis prophylaxis
     Dosage: DAILY DOSE 30 MG
     Route: 048
     Dates: start: 20160728, end: 20211116
  10. AMLODIPINE BESYLATE [Concomitant]
     Active Substance: AMLODIPINE BESYLATE
     Indication: Hypertension
     Dosage: DAILY DOSE 10 MG
     Route: 048
     Dates: start: 20161016, end: 20211116
  11. TELMISARTAN [Concomitant]
     Active Substance: TELMISARTAN
     Indication: Hypertension
     Dosage: DAILY DOSE 40 MG
     Route: 048
     Dates: start: 20181113, end: 20211116
  12. MIROGABALIN BESILATE [Concomitant]
     Indication: Spinal stenosis
     Dosage: DAILY DOSE 5 MG
     Route: 048
     Dates: start: 20200507, end: 20211116
  13. LIMAPROST [Concomitant]
     Active Substance: LIMAPROST
     Indication: Spinal stenosis
     Dosage: DAILY DOSE 10 UG
     Route: 048
     Dates: start: 20200507, end: 20211116
  14. DULOXETINE HYDROCHLORIDE [Concomitant]
     Active Substance: DULOXETINE HYDROCHLORIDE
     Indication: Spinal stenosis
     Dosage: DAILY DOSE 20 MG
     Route: 048
     Dates: start: 20200806, end: 20211116
  15. LOXOPROFEN SODIUM DIHYDRATE [Concomitant]
     Active Substance: LOXOPROFEN SODIUM DIHYDRATE
     Indication: Spinal stenosis
     Dosage: DAILY DOSE 100 MG
     Route: 003
     Dates: start: 20200806
  16. APIXABAN [Concomitant]
     Active Substance: APIXABAN
     Indication: Thrombosis prophylaxis
     Dosage: DAILY DOSE 5 MG
     Route: 048
     Dates: start: 20201004, end: 20211116
  17. FLECAINIDE ACETATE [Concomitant]
     Active Substance: FLECAINIDE ACETATE
     Indication: Arrhythmia
     Dosage: DAILY DOSE 100 MG
     Route: 048
     Dates: start: 20201004, end: 20211116
  18. VERAPAMIL HYDROCHLORIDE [Concomitant]
     Active Substance: VERAPAMIL HYDROCHLORIDE
     Indication: Arrhythmia
     Dosage: DAILY DOSE 40 MG
     Route: 048
     Dates: start: 20201004, end: 20211116
  19. CEFTRIAXONE SODIUM [Concomitant]
     Active Substance: CEFTRIAXONE SODIUM
     Indication: Pneumonia aspiration
     Dosage: DAILY DOSE 2 G
     Route: 042
     Dates: start: 20211205, end: 20211213

REACTIONS (1)
  - Decreased appetite [Fatal]

NARRATIVE: CASE EVENT DATE: 20211129
